FAERS Safety Report 23727410 (Version 1)
Quarter: 2024Q2

REPORT INFORMATION
  Report Type: Spontaneous
  Country: US (occurrence: US)
  Receive Date: 20240410
  Receipt Date: 20240410
  Transmission Date: 20240716
  Serious: Yes (Life-Threatening, Hospitalization)
  Sender: FDA-Public Use
  Company Number: US-MYLANLABS-2023M1137856

PATIENT
  Age: 21 Year
  Sex: Female

DRUGS (8)
  1. FENTANYL [Suspect]
     Active Substance: FENTANYL\FENTANYL CITRATE
     Indication: General anaesthesia
     Dosage: 100 MICROGRAM
     Route: 065
  2. FENTANYL [Suspect]
     Active Substance: FENTANYL\FENTANYL CITRATE
     Dosage: 50 MICROGRAM
     Route: 065
  3. CLOZAPINE [Suspect]
     Active Substance: CLOZAPINE
     Indication: Bipolar disorder
     Dosage: 150 MILLIGRAM, BID
     Route: 048
  4. FLUOXETINE [Suspect]
     Active Substance: FLUOXETINE HYDROCHLORIDE
     Indication: Bipolar disorder
     Dosage: 20 MILLIGRAM, QD
     Route: 048
  5. VALPROIC ACID [Suspect]
     Active Substance: VALPROIC ACID
     Indication: Bipolar disorder
     Dosage: 500 MILLIGRAM, BID
     Route: 048
  6. MIDAZOLAM [Concomitant]
     Active Substance: MIDAZOLAM
     Indication: General anaesthesia
     Dosage: 2 MILLIGRAM
     Route: 065
  7. PROPOFOL [Concomitant]
     Active Substance: PROPOFOL
     Indication: General anaesthesia
     Dosage: 70 MILLIGRAM
     Route: 065
  8. SEVOFLURANE [Concomitant]
     Active Substance: SEVOFLURANE
     Indication: General anaesthesia
     Dosage: UNK
     Route: 065

REACTIONS (3)
  - Intentional overdose [Recovered/Resolved]
  - Serotonin syndrome [Recovered/Resolved]
  - Condition aggravated [Recovered/Resolved]
